FAERS Safety Report 4610811-5 (Version None)
Quarter: 2005Q2

REPORT INFORMATION
  Report Type: 
  Country: None (occurrence: None)
  Receive Date: 20050223
  Receipt Date: 20040218
  Transmission Date: 20051028
  Serious: Yes (Hospitalization)
  Sender: FDA-Public Use
  Company Number: WAES 0402USA01404

PATIENT
  Age: 38 Year
  Sex: Male

DRUGS (1)
  1. ZOCOR [Suspect]
     Indication: HYPERCHOLESTEROLAEMIA
     Dosage: 20 MG/DAILY/PO
     Route: 048

REACTIONS (2)
  - ADVERSE EVENT [None]
  - HEPATITIS [None]
